FAERS Safety Report 23829951 (Version 1)
Quarter: 2024Q2

REPORT INFORMATION
  Report Type: Spontaneous
  Country: US (occurrence: US)
  Receive Date: 20240508
  Receipt Date: 20240508
  Transmission Date: 20240716
  Serious: Yes (Other)
  Sender: FDA-Public Use
  Company Number: US-LEO Pharma-370161

PATIENT
  Age: 37 Year
  Sex: Male

DRUGS (1)
  1. ADBRY [Suspect]
     Active Substance: TRALOKINUMAB-LDRM
     Indication: Dermatitis atopic
     Route: 058

REACTIONS (3)
  - Seizure [Recovered/Resolved]
  - Rash papular [Recovering/Resolving]
  - Bone contusion [Recovered/Resolved]

NARRATIVE: CASE EVENT DATE: 20240121
